FAERS Safety Report 11874043 (Version 1)
Quarter: 2015Q4

REPORT INFORMATION
  Report Type: Spontaneous
  Country: US (occurrence: US)
  Receive Date: 20151229
  Receipt Date: 20151229
  Transmission Date: 20160305
  Serious: Yes (Other)
  Sender: FDA-Public Use
  Company Number: US-CIPLA LTD.-2015US09683

PATIENT

DRUGS (5)
  1. BUPRENORPHINE. [Suspect]
     Active Substance: BUPRENORPHINE
     Route: 064
  2. TROPATEPINE [Suspect]
     Active Substance: TROPATEPINE
     Route: 064
  3. DIPOTASSIUM CHLORAZEPATE (POTASSIUM CHLORAZEPATE) (NOT SPECIFIED) [Suspect]
     Active Substance: CLORAZEPATE DIPOTASSIUM
     Route: 064
  4. CHLORPROMAZINE. [Suspect]
     Active Substance: CHLORPROMAZINE
     Route: 064
  5. RISPERIDONE. [Suspect]
     Active Substance: RISPERIDONE
     Dosage: DAILY
     Route: 064

REACTIONS (4)
  - Dysmorphism [Unknown]
  - Foetal exposure during pregnancy [Unknown]
  - Oesophageal atresia [Unknown]
  - External ear disorder [Unknown]
